FAERS Safety Report 7958786-5 (Version None)
Quarter: 2011Q4

REPORT INFORMATION
  Report Type: 
  Country: None (occurrence: None)
  Receive Date: 20111206
  Receipt Date: 20111130
  Transmission Date: 20120403
  Serious: Yes (Death, Hospitalization)
  Sender: FDA-Public Use
  Company Number: JP-BAYER-201012298BYL

PATIENT
  Age: 67 Year
  Sex: Male
  Weight: 68 kg

DRUGS (6)
  1. NEXAVAR [Suspect]
     Dosage: 400 MG (DAILY DOSE), BID, ORAL
     Route: 048
     Dates: start: 20100511, end: 20100517
  2. OMEPRAZOLE [Suspect]
     Indication: GASTROOESOPHAGEAL REFLUX DISEASE
     Dosage: 10 MG (DAILY DOSE), , ORAL
     Route: 048
     Dates: end: 20100602
  3. DIOVAN [Concomitant]
     Indication: HYPERTENSION
     Dosage: 80 MG (DAILY DOSE), , ORAL
     Route: 048
  4. NEXAVAR [Suspect]
     Indication: HEPATIC NEOPLASM MALIGNANT
     Dosage: 800 MG (DAILY DOSE), BID, ORAL
     Route: 048
     Dates: start: 20100401, end: 20100510
  5. AMLODIPINE [Suspect]
     Indication: HYPERTENSION
     Dosage: 2.5 MG (DAILY DOSE), , ORAL
     Route: 048
     Dates: end: 20100602
  6. ALLOPURINOL [Suspect]
     Indication: GOUT
     Dosage: 100 MG (DAILY DOSE), , ORAL
     Route: 048
     Dates: end: 20100602

REACTIONS (4)
  - PALMAR-PLANTAR ERYTHRODYSAESTHESIA SYNDROME [None]
  - HEPATIC NEOPLASM MALIGNANT [None]
  - HEPATIC FUNCTION ABNORMAL [None]
  - BLOOD PRESSURE INCREASED [None]
